FAERS Safety Report 12217006 (Version 1)
Quarter: 2016Q1

REPORT INFORMATION
  Report Type: Spontaneous
  Country: US (occurrence: US)
  Receive Date: 20160329
  Receipt Date: 20160329
  Transmission Date: 20160526
  Serious: No
  Sender: FDA-Public Use
  Company Number: US-MYLANLABS-2015M1013840

PATIENT
  Sex: Female
  Weight: 64.85 kg

DRUGS (4)
  1. GILENYA [Concomitant]
     Active Substance: FINGOLIMOD HYDROCHLORIDE
     Dosage: UNK
  2. TECFIDERA [Concomitant]
     Active Substance: DIMETHYL FUMARATE
     Dosage: UNK
  3. REBIF [Concomitant]
     Active Substance: INTERFERON BETA-1A
     Dosage: UNK
  4. BACLOFEN. [Suspect]
     Active Substance: BACLOFEN
     Indication: MUSCLE SPASTICITY
     Dosage: UNK, TID
     Route: 048

REACTIONS (1)
  - Drug dose omission [Recovered/Resolved]
